FAERS Safety Report 6785923-0 (Version None)
Quarter: 2010Q2

REPORT INFORMATION
  Report Type: 
  Country: None (occurrence: None)
  Receive Date: 20100623
  Receipt Date: 20100614
  Transmission Date: 20101027
  Serious: Yes (Hospitalization, Other)
  Sender: FDA-Public Use
  Company Number: GB-ELI_LILLY_AND_COMPANY-GB201004003059

PATIENT
  Sex: Female
  Weight: 119 kg

DRUGS (10)
  1. BYETTA [Suspect]
     Indication: TYPE 2 DIABETES MELLITUS
     Dosage: 5 UG, 2/D
     Route: 058
     Dates: start: 20100325, end: 20100412
  2. BYETTA [Suspect]
     Dosage: UNK, 2/D
     Route: 058
     Dates: start: 20100401
  3. CODEINE PHOSPHATE [Concomitant]
     Dosage: 20/500 UNK, UNKNOWN
     Route: 048
  4. PARACETAMOL [Concomitant]
     Dosage: UNK, UNKNOWN
     Route: 065
  5. MONTELUKAST [Concomitant]
     Dosage: 10 MG, DAILY (1/D)
     Route: 065
  6. GLICLAZIDE [Concomitant]
     Dosage: 30 MG, 2/D
     Route: 048
  7. RAMIPRIL [Concomitant]
     Dosage: 2.5 MG, DAILY (1/D)
     Route: 048
  8. METHOTREXATE [Concomitant]
     Dosage: 2.5 MG, DAILY (1/D)
     Route: 048
  9. ASPIRIN [Concomitant]
     Dosage: 75 MG, DAILY (1/D)
     Route: 048
  10. AMLODIPINE [Concomitant]
     Dosage: 5 MG, DAILY (1/D)
     Route: 065

REACTIONS (6)
  - ABDOMINAL DISCOMFORT [None]
  - BREATH ODOUR [None]
  - DIARRHOEA [None]
  - ERUCTATION [None]
  - NAUSEA [None]
  - VOMITING [None]
